FAERS Safety Report 17919385 (Version 3)
Quarter: 2020Q3

REPORT INFORMATION
  Report Type: Spontaneous
  Country: JP (occurrence: JP)
  Receive Date: 20200619
  Receipt Date: 20200711
  Transmission Date: 20201103
  Serious: Yes (Disabling)
  Sender: FDA-Public Use
  Company Number: JP-TAKEDA-2020TUS026741

PATIENT
  Age: 46 Year
  Sex: Male

DRUGS (5)
  1. TOSUFLOXACIN TOSILATE MONOHYDRATE [Concomitant]
     Dosage: 150 MILLIGRAM, TID
     Route: 048
  2. FEBURIC [Suspect]
     Active Substance: FEBUXOSTAT
     Indication: GOUT
     Dosage: 10 MILLIGRAM, QD
     Route: 048
     Dates: start: 20200417
  3. EMEDASTINE FUMARATE [Concomitant]
     Dosage: 4 GRAM, QD
     Route: 061
  4. CARBOCISTEINE [Concomitant]
     Active Substance: CARBOCYSTEINE
     Dosage: 500 MILLIGRAM, TID
     Route: 048
  5. LOXOPROFEN                         /00890702/ [Concomitant]
     Active Substance: LOXOPROFEN
     Indication: PAIN
     Dosage: 60 MILLIGRAM, TID
     Route: 048

REACTIONS (1)
  - Cataract subcapsular [Recovering/Resolving]

NARRATIVE: CASE EVENT DATE: 20200510
